FAERS Safety Report 9100325 (Version 5)
Quarter: 2013Q3

REPORT INFORMATION
  Report Type: Spontaneous
  Country: US (occurrence: US)
  Receive Date: 20130215
  Receipt Date: 20130722
  Transmission Date: 20140515
  Serious: Yes (Hospitalization, Other)
  Sender: FDA-Public Use
  Company Number: US-AMGEN-USASP2013010415

PATIENT
  Age: 67 Year
  Sex: Female

DRUGS (3)
  1. PROLIA [Suspect]
     Indication: OSTEOPOROSIS POSTMENOPAUSAL
     Dosage: 60 MG, Q6MO
     Route: 058
     Dates: start: 20110721
  2. BISPHOSPHONATES [Concomitant]
  3. FORTEO [Concomitant]

REACTIONS (9)
  - Femur fracture [Unknown]
  - Atypical femur fracture [Unknown]
  - Fall [Unknown]
  - Arthralgia [Unknown]
  - Arthritis [Unknown]
  - Arthropathy [Unknown]
  - Bone disorder [Unknown]
  - Injury [Unknown]
  - Pain in extremity [Recovered/Resolved]
